FAERS Safety Report 6298126-3 (Version None)
Quarter: 2009Q3

REPORT INFORMATION
  Report Type: 
  Country: None (occurrence: None)
  Receive Date: 20090805
  Receipt Date: 20090731
  Transmission Date: 20100115
  Serious: Yes (Death, Other)
  Sender: FDA-Public Use
  Company Number: CA-ROXANE LABORATORIES, INC.-2009-RO-00763RO

PATIENT
  Age: 84 Year
  Sex: Male

DRUGS (6)
  1. METHADONE [Suspect]
     Indication: PAIN IN EXTREMITY
     Dosage: 8 MG
  2. METHADONE [Suspect]
  3. HYDROMORPHONE HCL [Suspect]
     Indication: PAIN IN EXTREMITY
     Dosage: 30 MG
  4. ONDANSETRON [Suspect]
     Indication: NAUSEA
  5. ONDANSETRON [Suspect]
     Indication: PRURITUS
  6. GABAPENTIN [Suspect]
     Indication: PAIN IN EXTREMITY
     Dosage: 200 MG

REACTIONS (6)
  - DEATH [None]
  - DIZZINESS [None]
  - DRUG INEFFECTIVE [None]
  - NAUSEA [None]
  - PRURITUS [None]
  - SOMNOLENCE [None]
